FAERS Safety Report 5068794-2 (Version None)
Quarter: 2006Q3

REPORT INFORMATION
  Report Type: 
  Country: None (occurrence: None)
  Receive Date: 20060802
  Receipt Date: 20060405
  Transmission Date: 20061208
  Serious: No
  Sender: FDA-Public Use
  Company Number: US-BRISTOL-MYERS SQUIBB COMPANY-13338066

PATIENT
  Age: 51 Year
  Sex: Female
  Weight: 83 kg

DRUGS (7)
  1. COUMADIN [Suspect]
     Indication: PULMONARY EMBOLISM
     Dates: start: 20060401
  2. VERAPAMIL [Concomitant]
  3. VALSARTAN [Concomitant]
  4. TRIAMTERENE AND HYDROCHLOROTHIAZIDE [Concomitant]
     Dosage: DOSE: 75/50 MILLIGRAMS
  5. PROTONIX [Concomitant]
     Route: 048
  6. FERROUS SULFATE TAB [Concomitant]
     Dosage: TAKEN WITH MEALS
  7. HEPARIN [Concomitant]
     Route: 041

REACTIONS (2)
  - HEADACHE [None]
  - PYREXIA [None]
